FAERS Safety Report 5505498-3 (Version None)
Quarter: 2007Q4

REPORT INFORMATION
  Report Type: 
  Country: None (occurrence: None)
  Receive Date: 20071031
  Receipt Date: 20071016
  Transmission Date: 20080405
  Serious: Yes (Other)
  Sender: FDA-Public Use
  Company Number: S07-FRA-05658-01

PATIENT
  Age: 32 Year
  Sex: Male

DRUGS (1)
  1. SEROPLEX                         (ESCITALOPRAM) [Suspect]
     Indication: DEPRESSION
     Dosage: 10 MG QD PO
     Route: 048
     Dates: start: 20060201, end: 20070101

REACTIONS (2)
  - CUTANEOUS VASCULITIS [None]
  - DRUG TOXICITY [None]
